FAERS Safety Report 20540038 (Version 1)
Quarter: 2022Q1

REPORT INFORMATION
  Report Type: Spontaneous
  Country: CN (occurrence: CN)
  Receive Date: 20220302
  Receipt Date: 20220302
  Transmission Date: 20220423
  Serious: Yes (Hospitalization, Other)
  Sender: FDA-Public Use
  Company Number: CN-BAYER-2021A234430

PATIENT
  Age: 82 Year
  Sex: Female

DRUGS (1)
  1. XARELTO [Suspect]
     Active Substance: RIVAROXABAN
     Indication: Embolism venous
     Dosage: 1 DF, QD
     Route: 048
     Dates: start: 20210602, end: 20210915

REACTIONS (12)
  - Melaena [Recovered/Resolved]
  - Gastritis erosive [Unknown]
  - Gastric ulcer [Unknown]
  - Erosive duodenitis [Unknown]
  - Nausea [Recovering/Resolving]
  - Vomiting [Recovering/Resolving]
  - Chronic gastritis [Unknown]
  - Duodenogastric reflux [Unknown]
  - Prescribed underdose [Unknown]
  - Underdose [Unknown]
  - Product prescribing issue [Unknown]
  - Inappropriate schedule of product administration [Unknown]

NARRATIVE: CASE EVENT DATE: 20210602
